FAERS Safety Report 5724230-1 (Version None)
Quarter: 2008Q2

REPORT INFORMATION
  Report Type: 
  Country: None (occurrence: None)
  Receive Date: 20080428
  Receipt Date: 20080421
  Transmission Date: 20081010
  Serious: Yes (Hospitalization)
  Sender: FDA-Public Use
  Company Number: AMAN20080006

PATIENT
  Age: 78 Year
  Sex: Male

DRUGS (6)
  1. AMANTADINE HCL [Suspect]
     Indication: PARKINSON'S DISEASE
     Dosage: 100 MG, DAILY, PER ORAL
     Route: 048
     Dates: start: 20070316, end: 20070324
  2. LEVODOPA [Suspect]
     Indication: PARKINSON'S DISEASE
     Dosage: 600 MG, DAILY, PER ORAL
     Route: 048
     Dates: start: 20070316, end: 20070324
  3. BENSERAZIDE [Suspect]
     Indication: PARKINSON'S DISEASE
     Dosage: 150 MG, DAILY, PER ORAL
     Route: 048
     Dates: start: 20070316, end: 20070324
  4. CARBIDOPA/LEVODOPA 100MG/400MG [Concomitant]
  5. ROPINIROLE HCL [Concomitant]
  6. CLONAZEPAM [Concomitant]

REACTIONS (5)
  - ASTHENIA [None]
  - CONTRAINDICATION TO MEDICAL TREATMENT [None]
  - DRUG TOXICITY [None]
  - HALLUCINATION, VISUAL [None]
  - SEROTONIN SYNDROME [None]
